FAERS Safety Report 4611600-8 (Version None)
Quarter: 2005Q1

REPORT INFORMATION
  Report Type: 
  Country: None (occurrence: None)
  Receive Date: 20050316
  Receipt Date: 20050316
  Transmission Date: 20050727
  Serious: No
  Sender: FDA-Public Use
  Company Number: None

PATIENT
  Age: 34 Year
  Sex: Male
  Weight: 117.4816 kg

DRUGS (1)
  1. NEURONTIN [Suspect]
     Indication: DRUG DEPENDENCE
     Dosage: 300 MG PO/ ONE DOSE
     Route: 048
     Dates: start: 20050224

REACTIONS (2)
  - RASH MACULO-PAPULAR [None]
  - RESPIRATORY RATE INCREASED [None]
